FAERS Safety Report 4873769-X (Version None)
Quarter: 2006Q1

REPORT INFORMATION
  Report Type: 
  Country: None (occurrence: None)
  Receive Date: 20060104
  Receipt Date: 20051220
  Transmission Date: 20060701
  Serious: Yes (Other)
  Sender: FDA-Public Use
  Company Number: 2005172858

PATIENT
  Sex: Male

DRUGS (2)
  1. VIAGRA [Suspect]
     Indication: ILL-DEFINED DISORDER
  2. TADALAFIL (TADALAFIL) [Suspect]
     Indication: ILL-DEFINED DISORDER

REACTIONS (1)
  - BLINDNESS UNILATERAL [None]
